FAERS Safety Report 9526747 (Version 1)
Quarter: 2013Q1

REPORT INFORMATION
  Report Type: Spontaneous
  Country: US (occurrence: None)
  Receive Date: 20130321
  Receipt Date: 20130321
  Transmission Date: 20140127
  Serious: No
  Sender: FDA-Public Use
  Company Number: TH-2013-00010

PATIENT
  Sex: Male

DRUGS (23)
  1. EGRIFTA [Suspect]
     Indication: LIPODYSTROPHY ACQUIRED
     Dosage: 1 IN 1 D, SUBCUTANEOUS
     Route: 058
  2. COENZYME Q10 (UBIDECARENONE) [Concomitant]
  3. REYATAZ (ATAZANAVIR SULFATE) [Concomitant]
  4. ISENTRESS (RALTEGRAVIR POTASSIUM) CHEWABLE TABLET [Concomitant]
  5. XANAX (ALPRAZOLAM) [Concomitant]
  6. ANDROGEL GEL PUMP (TESTOSTERONE) [Concomitant]
  7. LIPITOR (ATROVASTATIN CALCIUM) [Concomitant]
  8. NEURONTIN (GABAPENTIN) [Concomitant]
  9. NIASPAN (NICOTINIC ACID0 [Concomitant]
  10. NORTRIPTYLIN (NORTRIPTYLINE HYDORCHLORIDE) [Concomitant]
  11. TAMSULOSIN (TAMSULOSIN) [Concomitant]
  12. VALTREX (VALACICLOVIR HYDORCHLORIDE) [Concomitant]
  13. EPZICOM (LAMIVUDINE, ABACAVIR SULFATE) [Concomitant]
  14. LOVAZA (OMEGA-3 MARINE TRIGLYCERIDES) [Concomitant]
  15. ALTACE (RAMIPRIL) [Concomitant]
  16. L-CARNITINE (LEVOCARNITINE) [Concomitant]
  17. VITAMIN D (ERGOCALCIFEROL) [Concomitant]
  18. VITAMIN C [Concomitant]
  19. MULTIVITAMIN (ERGOCALCIFEROL, ASCORBIC ACID, PYRIDOXINE HYDROCHLORIDE, THIAMINE HYDROCHLORIDED, RETINOL, RIBOFLAVIN, NICOTINAMIDE, CALCIUM PANTOTHENATE)? [Concomitant]
  20. B COMPLEX (PYRIDOXINE HYDROCHLORIDE, THIAMINE HYDROCHLORIDE, RIBOFLAVIN, NICOTINAMIDE)? [Concomitant]
  21. LEVOFLOXACIN (LEVOFLOXACIN) [Concomitant]
  22. ASPIRIN (ACETYLSALICYLIC ACID) [Concomitant]
  23. SOYPROTEIN POWER SHAKE [Concomitant]

REACTIONS (2)
  - Cystitis [None]
  - Prostatic specific antigen increased [None]
